FAERS Safety Report 5450879-X (Version None)
Quarter: 2007Q3

REPORT INFORMATION
  Report Type: 
  Country: None (occurrence: None)
  Receive Date: 20070911
  Receipt Date: 20070828
  Transmission Date: 20080115
  Serious: Yes (Life-Threatening, Hospitalization)
  Sender: FDA-Public Use
  Company Number: MPSI-10731

PATIENT
  Age: 20 Year
  Sex: Female
  Weight: 37.3 kg

DRUGS (3)
  1. ALDURAZYME [Suspect]
     Indication: MUCOPOLYSACCHARIDOSIS I
     Dosage: 23.2 MG QWK IV
     Route: 042
     Dates: start: 20070802
  2. CARDIZEM. MFR: MARION LABORATORIES, INCORPORATED [Concomitant]
  3. MOTRIN MFR: UPJOHN COMPANY, THE [Concomitant]

REACTIONS (13)
  - ANAPHYLACTIC REACTION [None]
  - BRONCHOSPASM [None]
  - CARDIO-RESPIRATORY ARREST [None]
  - CARDIOMEGALY [None]
  - CONVULSION [None]
  - EYELID OEDEMA [None]
  - HYPOKALAEMIA [None]
  - JOINT RANGE OF MOTION DECREASED [None]
  - LOCAL SWELLING [None]
  - PNEUMONIA ASPIRATION [None]
  - RESPIRATORY FAILURE [None]
  - STATUS ASTHMATICUS [None]
  - TACHYCARDIA [None]
